FAERS Safety Report 4986786-6 (Version None)
Quarter: 2006Q2

REPORT INFORMATION
  Report Type: 
  Country: None (occurrence: None)
  Receive Date: 20060428
  Receipt Date: 20050218
  Transmission Date: 20061013
  Serious: Yes (Hospitalization, Disabling)
  Sender: FDA-Public Use
  Company Number: US-MERCK-0502USA02724

PATIENT
  Age: 27 Year
  Sex: Female
  Weight: 96 kg

DRUGS (11)
  1. VIOXX [Suspect]
     Indication: CHEST PAIN
     Route: 048
     Dates: start: 20030814, end: 20041014
  2. VIOXX [Suspect]
     Indication: HODGKIN'S DISEASE
     Route: 048
     Dates: start: 20030814, end: 20041014
  3. ZOCOR [Concomitant]
     Route: 065
  4. TOPROL-XL [Concomitant]
     Route: 065
  5. SYNTHROID [Concomitant]
     Route: 065
  6. ASPIRIN [Concomitant]
     Route: 065
  7. ALLEGRA [Concomitant]
     Route: 065
  8. ALBUTEROL [Concomitant]
     Route: 065
  9. NEXIUM [Concomitant]
     Route: 065
  10. MAVIK [Concomitant]
     Route: 065
  11. ISOSORBIDE [Concomitant]
     Route: 065

REACTIONS (4)
  - CEREBROVASCULAR ACCIDENT [None]
  - CORONARY ARTERY OCCLUSION [None]
  - MYOCARDIAL INFARCTION [None]
  - NEOPLASM MALIGNANT [None]
